FAERS Safety Report 9221003 (Version 1)
Quarter: 2013Q2

REPORT INFORMATION
  Report Type: Spontaneous
  Country: DE (occurrence: DE)
  Receive Date: 20130409
  Receipt Date: 20130409
  Transmission Date: 20140414
  Serious: Yes (Other)
  Sender: FDA-Public Use
  Company Number: DE-ABBOTT-13P-062-1073844-00

PATIENT
  Age: 47 Year
  Sex: Male
  Weight: 72 kg

DRUGS (4)
  1. LOPINAVIR/RITONAVIR [Suspect]
     Indication: HIV INFECTION
  2. TACROLIMUS [Interacting]
     Indication: IMMUNOSUPPRESSION
  3. TENOFOVIR [Interacting]
     Indication: HIV INFECTION
  4. LAMIVUDINE [Interacting]
     Indication: HIV INFECTION

REACTIONS (2)
  - Drug metabolising enzyme test abnormal [Recovered/Resolved]
  - Drug interaction [Recovered/Resolved]
